FAERS Safety Report 25045105 (Version 1)
Quarter: 2025Q1

REPORT INFORMATION
  Report Type: Report from Study
  Country: AU (occurrence: AU)
  Receive Date: 20250306
  Receipt Date: 20250306
  Transmission Date: 20250409
  Serious: Yes (Death, Other)
  Sender: AMGEN
  Company Number: AU-BEH-2025197424

PATIENT
  Age: 78 Year
  Sex: Male

DRUGS (1)
  1. AVACOPAN [Suspect]
     Active Substance: AVACOPAN
     Indication: Product used for unknown indication
     Route: 065
     Dates: start: 202311

REACTIONS (3)
  - Death [Fatal]
  - Urosepsis [Unknown]
  - Interstitial lung disease [Unknown]

NARRATIVE: CASE EVENT DATE: 20240201
